FAERS Safety Report 7748040 (Version 3)
Quarter: 2017Q1

REPORT INFORMATION
  Report Type: Report from Study
  Country: PL (occurrence: PL)
  Receive Date: 20110104
  Receipt Date: 20170221
  Transmission Date: 20170429
  Serious: Yes (Other)
  Sender: FDA-Public Use
  Company Number: PL-BAYER-2010-006667

PATIENT
  Age: 23 Year
  Sex: Female
  Weight: 59 kg

DRUGS (1)
  1. YAZ [Suspect]
     Active Substance: DROSPIRENONE\ETHINYL ESTRADIOL
     Indication: CONTRACEPTION
     Dosage: UNK UNK, QD
     Dates: start: 20100702, end: 20100709

REACTIONS (7)
  - Headache [Recovered/Resolved]
  - Vomiting [Recovered/Resolved]
  - Vertigo [Recovered/Resolved]
  - Dizziness [None]
  - Syncope [Recovered/Resolved]
  - Diarrhoea [Recovered/Resolved]
  - Nausea [None]
